FAERS Safety Report 14485044 (Version 3)
Quarter: 2020Q2

REPORT INFORMATION
  Report Type: Spontaneous
  Country: US (occurrence: US)
  Receive Date: 20180205
  Receipt Date: 20200430
  Transmission Date: 20200713
  Serious: No
  Sender: FDA-Public Use
  Company Number: US-PFIZER INC-2018045326

PATIENT
  Age: 17 Year
  Sex: Male
  Weight: 40.37 kg

DRUGS (3)
  1. GENOTROPIN MQ [Suspect]
     Active Substance: SOMATROPIN
     Dosage: 4.4 MG, 1X/DAY
     Dates: end: 20180120
  2. GENOTROPIN MQ [Suspect]
     Active Substance: SOMATROPIN
     Dosage: 0.8 MG, DAILY
     Dates: start: 20130222
  3. CORTISOL [Concomitant]
     Active Substance: HYDROCORTISONE
     Indication: MALAISE
     Dosage: 10 MG, AS NEEDED

REACTIONS (1)
  - Influenza [Recovering/Resolving]

NARRATIVE: CASE EVENT DATE: 20180122
